FAERS Safety Report 21274051 (Version 1)
Quarter: 2022Q3

REPORT INFORMATION
  Report Type: Spontaneous
  Country: US (occurrence: US)
  Receive Date: 20220831
  Receipt Date: 20220831
  Transmission Date: 20221026
  Serious: No
  Sender: FDA-Public Use
  Company Number: US-PERRIGO-22US004625

PATIENT
  Age: 8 Year
  Weight: 22.676 kg

DRUGS (2)
  1. LORATADINE [Suspect]
     Active Substance: LORATADINE
     Indication: Product used for unknown indication
     Dosage: 10 MG, ONCE AT 2100
     Route: 048
     Dates: start: 20220323, end: 20220323
  2. LORATADINE [Suspect]
     Active Substance: LORATADINE
     Dosage: 10 MG, ONCE AT 0800
     Route: 048
     Dates: start: 20220324, end: 20220324

REACTIONS (1)
  - Extra dose administered [Recovered/Resolved]

NARRATIVE: CASE EVENT DATE: 20220323
